FAERS Safety Report 9047034 (Version 2)
Quarter: 2013Q3

REPORT INFORMATION
  Report Type: Spontaneous
  Country: US (occurrence: US)
  Receive Date: 20130204
  Receipt Date: 20130912
  Transmission Date: 20140515
  Serious: Yes (Death, Other)
  Sender: FDA-Public Use
  Company Number: US-JNJFOC-20130115082

PATIENT
  Sex: 0

DRUGS (9)
  1. DOXORUBICIN [Suspect]
     Indication: BURKITT^S LYMPHOMA
     Route: 042
  2. RITUXIMAB [Suspect]
     Indication: BURKITT^S LYMPHOMA
     Dosage: ON DAYS 0 + 8
     Route: 042
  3. CYCLOPHOSPHAMIDE [Suspect]
     Indication: BURKITT^S LYMPHOMA
     Route: 065
  4. VINCRISTINE [Suspect]
     Indication: BURKITT^S LYMPHOMA
     Route: 065
  5. METHOTREXATE [Suspect]
     Indication: BURKITT^S LYMPHOMA
     Route: 065
  6. IFOSFAMIDE [Suspect]
     Indication: BURKITT^S LYMPHOMA
     Route: 065
  7. MESNA [Suspect]
     Indication: BURKITT^S LYMPHOMA
     Route: 065
  8. ETOPOSIDE [Suspect]
     Indication: BURKITT^S LYMPHOMA
     Route: 065
  9. CYTARABINE [Suspect]
     Indication: BURKITT^S LYMPHOMA
     Route: 065

REACTIONS (15)
  - Disease progression [Fatal]
  - Bone marrow failure [Unknown]
  - Mucosal inflammation [Unknown]
  - Infection [Unknown]
  - Febrile neutropenia [Unknown]
  - Transaminases increased [Unknown]
  - Diarrhoea [Unknown]
  - Cardiac disorder [Unknown]
  - Blood creatinine increased [Unknown]
  - Convulsion [Unknown]
  - Nausea [Unknown]
  - Vomiting [Unknown]
  - Thrombocytopenia [Unknown]
  - Anaemia [Unknown]
  - Mucosal inflammation [Unknown]
